FAERS Safety Report 15860276 (Version 2)
Quarter: 2019Q1

REPORT INFORMATION
  Report Type: Report from Study
  Country: CA (occurrence: CA)
  Receive Date: 20190123
  Receipt Date: 20190131
  Transmission Date: 20190417
  Serious: Yes (Other)
  Sender: FDA-Public Use
  Company Number: PHHY2018CA021146

PATIENT
  Age: 64 Year
  Sex: Female

DRUGS (21)
  1. XOLAIR [Suspect]
     Active Substance: OMALIZUMAB
     Dosage: 375 MG, BIW
     Route: 058
  2. REACTINE [CETIRIZINE HYDROCHLORIDE] [Concomitant]
     Active Substance: CETIRIZINE HYDROCHLORIDE
     Indication: ASTHMA
     Dosage: 1 DF, QD
     Route: 048
     Dates: start: 2003
  3. XOLAIR [Suspect]
     Active Substance: OMALIZUMAB
     Indication: ASTHMA
     Dosage: 375 MG, BIW
     Route: 058
     Dates: start: 20180606
  4. XOLAIR [Suspect]
     Active Substance: OMALIZUMAB
     Dosage: 375 MG, BIW
     Route: 058
     Dates: start: 20180703
  5. XOLAIR [Suspect]
     Active Substance: OMALIZUMAB
     Dosage: 375 MG, BIW
     Route: 058
     Dates: start: 20190102
  6. ZENHALE [Concomitant]
     Active Substance: FORMOTEROL FUMARATE\MOMETASONE FUROATE
     Indication: ASTHMA
     Dosage: 2 DF (FORMOTEROL FUMARATE 5 UG, MOMETASONE FUROATE 100 UG), BID
     Route: 055
     Dates: start: 2011
  7. PREDNISONE. [Concomitant]
     Active Substance: PREDNISONE
     Indication: ASTHMA
     Dosage: 1 DF, PRN
     Route: 048
  8. XOLAIR [Suspect]
     Active Substance: OMALIZUMAB
     Dosage: 375 MG, BIW
     Route: 058
     Dates: start: 20180620
  9. XOLAIR [Suspect]
     Active Substance: OMALIZUMAB
     Dosage: 375 MG, BIW
     Route: 058
     Dates: start: 20180620
  10. PATANOL [Concomitant]
     Active Substance: OLOPATADINE HYDROCHLORIDE
     Indication: EYE DISORDER
     Dosage: 2 GTT, BID
     Route: 047
     Dates: start: 2008
  11. VENTOLIN [Concomitant]
     Active Substance: ALBUTEROL SULFATE
     Indication: ASTHMA
     Dosage: 2 DF, BID
     Route: 055
     Dates: start: 1978
  12. OMNARIS [Concomitant]
     Active Substance: CICLESONIDE
     Indication: HYPERSENSITIVITY
     Dosage: 2 DF, PRN
     Route: 045
     Dates: start: 2008
  13. ATARAX [Concomitant]
     Active Substance: HYDROXYZINE HYDROCHLORIDE
     Indication: HYPERSENSITIVITY
     Dosage: 1 DF, PRN
     Route: 048
     Dates: start: 2003
  14. XOLAIR [Suspect]
     Active Substance: OMALIZUMAB
     Dosage: 375 MG, BIW
     Route: 058
  15. XOLAIR [Suspect]
     Active Substance: OMALIZUMAB
     Dosage: 375 MG, BIW
     Route: 058
     Dates: start: 20180912
  16. XOLAIR [Suspect]
     Active Substance: OMALIZUMAB
     Dosage: 375 MG, BIW
     Route: 058
     Dates: start: 20180912
  17. XOLAIR [Suspect]
     Active Substance: OMALIZUMAB
     Dosage: 375 MG, BIW
     Route: 058
     Dates: start: 20181009
  18. SPIRIVA [Concomitant]
     Active Substance: TIOTROPIUM BROMIDE MONOHYDRATE
     Indication: ASTHMA
     Dosage: 1 DF, QD
     Route: 055
     Dates: start: 2017
  19. XOLAIR [Suspect]
     Active Substance: OMALIZUMAB
     Dosage: 375 MG, BIW
     Route: 058
  20. OMNARIS [Concomitant]
     Active Substance: CICLESONIDE
     Indication: SINUS DISORDER
  21. XOLAIR [Suspect]
     Active Substance: OMALIZUMAB
     Dosage: 375 MG, BIW
     Route: 058
     Dates: start: 20180829

REACTIONS (31)
  - Hot flush [Recovered/Resolved]
  - Blood pressure increased [Not Recovered/Not Resolved]
  - Contusion [Unknown]
  - Respiratory disorder [Unknown]
  - Migraine [Recovered/Resolved]
  - Back pain [Unknown]
  - Haematuria [Recovered/Resolved]
  - Haemorrhage urinary tract [Unknown]
  - Asthenia [Recovered/Resolved]
  - Lethargy [Unknown]
  - Pyrexia [Recovered/Resolved]
  - Cystitis haemorrhagic [Not Recovered/Not Resolved]
  - Gait disturbance [Unknown]
  - Seasonal allergy [Unknown]
  - Diarrhoea [Recovered/Resolved]
  - Cystitis haemorrhagic [Recovered/Resolved]
  - Foot fracture [Unknown]
  - Hot flush [Recovered/Resolved]
  - Urinary tract infection [Recovered/Resolved]
  - Fall [Unknown]
  - Gastrointestinal disorder [Unknown]
  - Dyspnoea [Recovering/Resolving]
  - Arthralgia [Not Recovered/Not Resolved]
  - Cough [Unknown]
  - Dyspnoea [Recovered/Resolved]
  - Abdominal pain [Recovered/Resolved]
  - Micturition disorder [Unknown]
  - Urinary tract infection [Unknown]
  - Fatigue [Recovered/Resolved]
  - Dysuria [Recovered/Resolved]
  - Abdominal pain upper [Recovering/Resolving]

NARRATIVE: CASE EVENT DATE: 20180606
